FAERS Safety Report 9588760 (Version 1)
Quarter: 2013Q4

REPORT INFORMATION
  Report Type: Spontaneous
  Country: US (occurrence: US)
  Receive Date: 20131003
  Receipt Date: 20131003
  Transmission Date: 20140711
  Serious: No
  Sender: FDA-Public Use
  Company Number: US-AMGEN-USASP2012066276

PATIENT
  Age: 33 Year
  Sex: Female
  Weight: 99.77 kg

DRUGS (6)
  1. ENBREL [Suspect]
     Indication: PRODUCT USED FOR UNKNOWN INDICATION
     Dosage: 50 MG, 2 TIMES/WK
  2. LEVOTHYROXIN [Concomitant]
     Dosage: 100 MUG, UNK
  3. ATENOL W/CHLORTALIDONE EUROGENERICS [Concomitant]
     Dosage: 50-25 MG, UNK
  4. LISINOPRIL [Concomitant]
     Dosage: 10 MG, UNK
  5. METFORMIN ER [Concomitant]
     Dosage: 1000 MG, UNK
  6. VITAMIN C                          /00008001/ [Concomitant]
     Dosage: 500 MG, UNK

REACTIONS (1)
  - Nasopharyngitis [Unknown]
